FAERS Safety Report 15453848 (Version 4)
Quarter: 2018Q4

REPORT INFORMATION
  Report Type: Report from Study
  Country: EC (occurrence: EC)
  Receive Date: 20181001
  Receipt Date: 20181030
  Transmission Date: 20190204
  Serious: Yes (Hospitalization, Other)
  Sender: FDA-Public Use
  Company Number: PHHY2018EC059615

PATIENT
  Age: 64 Year
  Sex: Male
  Weight: 87 kg

DRUGS (8)
  1. CARVEDILOL. [Suspect]
     Active Substance: CARVEDILOL
     Indication: PRODUCT USED FOR UNKNOWN INDICATION
     Dosage: 12.5 MG, UNK
     Route: 065
  2. NOVOLIN [Concomitant]
     Active Substance: INSULIN HUMAN
     Indication: DIABETES MELLITUS
     Dosage: 20 IU, QD MORNING
     Route: 065
  3. ENTRESTO [Suspect]
     Active Substance: SACUBITRIL\VALSARTAN
     Dosage: 0.5 DF (SACUBITRIL 24 MG AND VALSARTAN 26 MG), BID
     Route: 048
     Dates: start: 20181003
  4. SIMVASTATIN. [Suspect]
     Active Substance: SIMVASTATIN
     Indication: CARDIAC DISORDER
     Dosage: 20 MG, QHS
     Route: 048
  5. ENTRESTO [Suspect]
     Active Substance: SACUBITRIL\VALSARTAN
     Dosage: 50 MG, BID
     Route: 048
     Dates: start: 20171017, end: 20180702
  6. SPIRONOLACTONE. [Concomitant]
     Active Substance: SPIRONOLACTONE
     Indication: OEDEMA
     Dosage: 25 MG, BID
     Route: 048
     Dates: start: 20160920
  7. ENTRESTO [Suspect]
     Active Substance: SACUBITRIL\VALSARTAN
     Indication: CARDIAC FAILURE
     Dosage: 0.5 DF (SACUBITRIL 24 MG AND VALSARTAN 26 MG), BID
     Route: 048
     Dates: start: 20171017
  8. ENTRESTO [Suspect]
     Active Substance: SACUBITRIL\VALSARTAN
     Dosage: 25 MG, BID
     Route: 048
     Dates: start: 20180703

REACTIONS (18)
  - Hepatic cirrhosis [Recovering/Resolving]
  - Oedema peripheral [Unknown]
  - Hyperkalaemia [Unknown]
  - Decreased appetite [Recovered/Resolved]
  - Blood pressure decreased [Recovering/Resolving]
  - Blood chloride decreased [Unknown]
  - Jaundice [Unknown]
  - Liver disorder [Recovering/Resolving]
  - Peripheral swelling [Unknown]
  - Blood chloride increased [Unknown]
  - Prescribed underdose [Unknown]
  - Blood calcium decreased [Unknown]
  - Blood calcium increased [Unknown]
  - Chronic kidney disease [Recovering/Resolving]
  - Glucose tolerance impaired [Unknown]
  - Colitis [Not Recovered/Not Resolved]
  - Renal disorder [Recovering/Resolving]
  - Wrong technique in product usage process [Unknown]

NARRATIVE: CASE EVENT DATE: 20171017
